FAERS Safety Report 19214291 (Version 1)
Quarter: 2021Q2

REPORT INFORMATION
  Report Type: Spontaneous
  Country: US (occurrence: US)
  Receive Date: 20210505
  Receipt Date: 20210505
  Transmission Date: 20210717
  Serious: No
  Sender: FDA-Public Use
  Company Number: US-JNJFOC-20210442695

PATIENT
  Sex: Female
  Weight: 52.21 kg

DRUGS (4)
  1. PRISTIQ EXTENDED?RELEASE [Concomitant]
     Active Substance: DESVENLAFAXINE SUCCINATE
     Indication: PRODUCT USED FOR UNKNOWN INDICATION
     Route: 048
  2. SPRAVATO [Suspect]
     Active Substance: ESKETAMINE
     Indication: DEPRESSION
  3. SPRAVATO [Suspect]
     Active Substance: ESKETAMINE
  4. VRAYLAR [Concomitant]
     Active Substance: CARIPRAZINE
     Indication: PRODUCT USED FOR UNKNOWN INDICATION
     Route: 048

REACTIONS (1)
  - Drug ineffective [Not Recovered/Not Resolved]
